FAERS Safety Report 6647434-2 (Version None)
Quarter: 2010Q1

REPORT INFORMATION
  Report Type: 
  Country: None (occurrence: None)
  Receive Date: 20100323
  Receipt Date: 20100210
  Transmission Date: 20100710
  Serious: Yes (Hospitalization, Disabling, Other)
  Sender: FDA-Public Use
  Company Number: US-BAXTER-2009BH016511

PATIENT
  Age: 54 Year
  Sex: Female
  Weight: 51 kg

DRUGS (16)
  1. HEPARIN SODIUM INJECTION [Suspect]
     Indication: DRUG USE FOR UNKNOWN INDICATION
     Route: 058
     Dates: start: 20071015, end: 20071015
  2. HEPARIN SODIUM INJECTION [Suspect]
     Route: 040
     Dates: start: 20071016, end: 20071016
  3. HEPARIN SODIUM INJECTION [Suspect]
     Route: 042
     Dates: start: 20071016, end: 20071016
  4. HEPARIN SODIUM INJECTION [Suspect]
     Route: 058
     Dates: start: 20071017, end: 20071017
  5. HEPARIN SODIUM INJECTION [Suspect]
     Route: 058
     Dates: start: 20071018, end: 20071018
  6. HEPARIN SODIUM INJECTION [Suspect]
     Route: 065
     Dates: start: 20071018, end: 20071018
  7. HEPARIN SODIUM INJECTION [Suspect]
     Route: 065
     Dates: start: 20071018, end: 20071018
  8. HEPARIN SODIUM INJECTION [Suspect]
     Route: 042
     Dates: start: 20071018, end: 20071018
  9. HEPARIN SODIUM INJECTION [Suspect]
     Route: 040
     Dates: start: 20071018, end: 20071018
  10. HEPARIN SODIUM INJECTION [Suspect]
     Route: 065
     Dates: start: 20071019, end: 20071019
  11. HEPARIN SODIUM INJECTION [Suspect]
     Route: 042
     Dates: start: 20071101, end: 20071101
  12. HEPARIN SODIUM 5,000 UNITS IN DEXTROSE 5% [Suspect]
     Indication: DRUG USE FOR UNKNOWN INDICATION
     Route: 042
     Dates: start: 20071016, end: 20071016
  13. HEPARIN SODIUM 5,000 UNITS IN DEXTROSE 5% [Suspect]
     Route: 042
     Dates: start: 20071017, end: 20071017
  14. HEPARIN SODIUM 5,000 UNITS IN DEXTROSE 5% [Suspect]
     Route: 042
     Dates: start: 20071019, end: 20071019
  15. PAXIL [Concomitant]
     Indication: DRUG USE FOR UNKNOWN INDICATION
     Route: 065
  16. TYLENOL-500 [Concomitant]
     Indication: DRUG USE FOR UNKNOWN INDICATION
     Route: 065

REACTIONS (19)
  - ABDOMINAL ABSCESS [None]
  - ATRIAL FIBRILLATION [None]
  - CARDIAC DISORDER [None]
  - CARDIAC FAILURE CONGESTIVE [None]
  - CLOSTRIDIUM DIFFICILE COLITIS [None]
  - COMA [None]
  - DEPRESSION [None]
  - DRUG HYPERSENSITIVITY [None]
  - DYSLIPIDAEMIA [None]
  - HEPARIN-INDUCED THROMBOCYTOPENIA [None]
  - HYPERTENSION [None]
  - HYPOTENSION [None]
  - INTESTINAL OBSTRUCTION [None]
  - LIVER DISORDER [None]
  - MALLORY-WEISS SYNDROME [None]
  - NERVE INJURY [None]
  - PERIPHERAL EMBOLISM [None]
  - RENAL FAILURE ACUTE [None]
  - UPPER GASTROINTESTINAL HAEMORRHAGE [None]
